FAERS Safety Report 10340232 (Version 1)
Quarter: 2014Q3

REPORT INFORMATION
  Report Type: Spontaneous
  Country: NO (occurrence: NO)
  Receive Date: 20140724
  Receipt Date: 20140724
  Transmission Date: 20150326
  Serious: Yes (Other)
  Sender: FDA-Public Use
  Company Number: NO-ASTRAZENECA-2014SE51854

PATIENT
  Sex: Male

DRUGS (5)
  1. ZOLADEX [Suspect]
     Active Substance: GOSERELIN ACETATE
     Indication: PROSTATE CANCER
     Dosage: 10.8 MG EVERY THREE MONTHS, SECOND INJECTION
     Route: 058
     Dates: start: 20131115
  2. RADIOTHERAPY [Concomitant]
     Active Substance: RADIATION THERAPY
     Dosage: 37 DOSES
     Dates: start: 201401, end: 201403
  3. ZOLADEX [Suspect]
     Active Substance: GOSERELIN ACETATE
     Indication: PROSTATE CANCER
     Dosage: 10.8 MG EVERY THREE MONTHS, FIRST INJECTION
     Route: 058
     Dates: start: 20130816
  4. ZOLADEX [Suspect]
     Active Substance: GOSERELIN ACETATE
     Indication: PROSTATE CANCER
     Dosage: 10.8 MG EVERY THREE MONTHS, THIRD INJECTION
     Route: 058
     Dates: start: 20140214
  5. ZOLADEX [Suspect]
     Active Substance: GOSERELIN ACETATE
     Indication: PROSTATE CANCER
     Dosage: 10.8 MG EVERY THREE MONTHS, FOURTH INJECTION
     Route: 058
     Dates: start: 20140526

REACTIONS (1)
  - Skin reaction [Unknown]
